FAERS Safety Report 7112228-0 (Version None)
Quarter: 2010Q4

REPORT INFORMATION
  Report Type: 
  Country: None (occurrence: None)
  Receive Date: 20101119
  Receipt Date: 20100528
  Transmission Date: 20110411
  Serious: No
  Sender: FDA-Public Use
  Company Number: A0852384A

PATIENT
  Age: 78 Year
  Sex: Male
  Weight: 72.3 kg

DRUGS (4)
  1. AVODART [Suspect]
     Dosage: .5MG PER DAY
     Route: 048
     Dates: start: 20100310
  2. LISINOPRIL [Concomitant]
     Route: 048
     Dates: start: 20050613
  3. ASPIRIN [Concomitant]
     Route: 048
  4. TRIAMTERENE AND HYDROCHLOROTHIAZIDE [Concomitant]
     Route: 048
     Dates: start: 20090330

REACTIONS (4)
  - DYSPNOEA EXERTIONAL [None]
  - GAIT DISTURBANCE [None]
  - PALPITATIONS [None]
  - RESTLESSNESS [None]
